FAERS Safety Report 13342157 (Version 1)
Quarter: 2017Q1

REPORT INFORMATION
  Report Type: Spontaneous
  Country: US (occurrence: US)
  Receive Date: 20170316
  Receipt Date: 20170316
  Transmission Date: 20170428
  Serious: Yes (Life-Threatening, Hospitalization)
  Sender: FDA-Public Use
  Company Number: None

PATIENT
  Sex: Female

DRUGS (28)
  1. PROZAC [Suspect]
     Active Substance: FLUOXETINE HYDROCHLORIDE
  2. BACLOFEN. [Concomitant]
     Active Substance: BACLOFEN
  3. SPIRONOLACTONE. [Concomitant]
     Active Substance: SPIRONOLACTONE
  4. VITAMIN D3 [Concomitant]
     Active Substance: CHOLECALCIFEROL
  5. FISH OIL [Concomitant]
     Active Substance: FISH OIL
  6. MAXZIDE-25 [Suspect]
     Active Substance: HYDROCHLOROTHIAZIDE\TRIAMTERENE
     Indication: HYPERTENSION
     Route: 048
  7. ULTRAM [Concomitant]
     Active Substance: TRAMADOL HYDROCHLORIDE
  8. NORVASC [Concomitant]
     Active Substance: AMLODIPINE BESYLATE
  9. L-LYSENE [Concomitant]
  10. PREMARIN [Concomitant]
     Active Substance: ESTROGENS, CONJUGATED
  11. MUINEX [Concomitant]
  12. BENADRYL [Concomitant]
     Active Substance: DIPHENHYDRAMINE HYDROCHLORIDE
  13. ATENOLOL. [Concomitant]
     Active Substance: ATENOLOL
  14. MAGNISIUM [Concomitant]
  15. STRESS B COMPLEX [Concomitant]
  16. CALCIUM CITRATE [Concomitant]
     Active Substance: CALCIUM CITRATE
  17. SOOTHE XP [Concomitant]
     Active Substance: LIGHT MINERAL OIL\MINERAL OIL
  18. RAMLIPRIL [Concomitant]
  19. TYLONOL [Concomitant]
  20. GARLIC. [Concomitant]
     Active Substance: GARLIC
  21. PROZAC [Suspect]
     Active Substance: FLUOXETINE HYDROCHLORIDE
     Indication: ANXIETY
     Dosage: ?          QUANTITY:9 FIT I IF;?I / L/AL;?
     Route: 048
     Dates: end: 20161217
  22. PROZAC [Suspect]
     Active Substance: FLUOXETINE HYDROCHLORIDE
     Indication: DEPRESSION
     Dosage: ?          QUANTITY:9 FIT I IF;?I / L/AL;?
     Route: 048
     Dates: end: 20161217
  23. OMEPRAZOLE. [Concomitant]
     Active Substance: OMEPRAZOLE
  24. SUDAFED [Concomitant]
     Active Substance: PSEUDOEPHEDRINE HYDROCHLORIDE
  25. DYCIOMINE [Concomitant]
  26. EXCEDREN [Concomitant]
  27. VITAMIN E [Concomitant]
     Active Substance: .ALPHA.-TOCOPHEROL
  28. VITAMIN C [Concomitant]
     Active Substance: ASCORBIC ACID

REACTIONS (4)
  - Memory impairment [None]
  - Confusional state [None]
  - Blood sodium decreased [None]
  - Paraesthesia [None]

NARRATIVE: CASE EVENT DATE: 201611
